FAERS Safety Report 24005556 (Version 1)
Quarter: 2024Q2

REPORT INFORMATION
  Report Type: Spontaneous
  Country: US (occurrence: US)
  Receive Date: 20240624
  Receipt Date: 20240624
  Transmission Date: 20240715
  Serious: No
  Sender: FDA-Public Use
  Company Number: US-BAYER-2024A086805

PATIENT
  Age: 20 Year
  Sex: Female

DRUGS (2)
  1. MIRENA [Suspect]
     Active Substance: LEVONORGESTREL
     Indication: Hormone level abnormal
     Dosage: 20?G/DAY
     Route: 015
     Dates: start: 20190312, end: 20240321
  2. MIRENA [Suspect]
     Active Substance: LEVONORGESTREL
     Indication: Urticaria

REACTIONS (7)
  - Chills [Not Recovered/Not Resolved]
  - Dizziness [Not Recovered/Not Resolved]
  - Fatigue [Not Recovered/Not Resolved]
  - Rash [Not Recovered/Not Resolved]
  - Genital haemorrhage [Not Recovered/Not Resolved]
  - Off label use [None]
  - Device use issue [None]

NARRATIVE: CASE EVENT DATE: 20240321
